FAERS Safety Report 16271115 (Version 2)
Quarter: 2019Q2

REPORT INFORMATION
  Report Type: Report from Study
  Country: US (occurrence: US)
  Receive Date: 20190503
  Receipt Date: 20190603
  Transmission Date: 20190711
  Serious: Yes (Death, Hospitalization)
  Sender: FDA-Public Use
  Company Number: US-BAYER-2019-053248

PATIENT
  Age: 62 Year
  Sex: Male
  Weight: 120.18 kg

DRUGS (3)
  1. ELIQUIS [Concomitant]
     Active Substance: APIXABAN
  2. ADEMPAS [Suspect]
     Active Substance: RIOCIGUAT
     Indication: PRODUCT USED FOR UNKNOWN INDICATION
     Dosage: 1.0 MG, TID
     Route: 048
     Dates: start: 20190227
  3. UPTRAVI [Concomitant]
     Active Substance: SELEXIPAG

REACTIONS (2)
  - Loss of consciousness [Not Recovered/Not Resolved]
  - Pulseless electrical activity [Fatal]

NARRATIVE: CASE EVENT DATE: 201903
